FAERS Safety Report 7681241-7 (Version None)
Quarter: 2011Q3

REPORT INFORMATION
  Report Type: 
  Country: None (occurrence: None)
  Receive Date: 20110812
  Receipt Date: 20110802
  Transmission Date: 20111222
  Serious: Yes (Other)
  Sender: FDA-Public Use
  Company Number: US-ROCHE-767061

PATIENT
  Sex: Female
  Weight: 49.9 kg

DRUGS (4)
  1. ACCUTANE [Suspect]
     Indication: ACNE
     Dosage: IN 1980'S
     Route: 065
  2. ACCUTANE [Suspect]
     Route: 065
     Dates: start: 19800101
  3. ACCUTANE [Suspect]
     Dosage: 6 MONTH TERM
     Route: 065
     Dates: start: 19940101, end: 19950101
  4. ACCUTANE [Suspect]
     Route: 065
     Dates: start: 19930101, end: 19940101

REACTIONS (7)
  - SUICIDAL IDEATION [None]
  - IRRITABLE BOWEL SYNDROME [None]
  - INFLAMMATORY BOWEL DISEASE [None]
  - COLITIS ULCERATIVE [None]
  - DEPRESSION [None]
  - COLITIS [None]
  - GASTROINTESTINAL DISORDER [None]
